FAERS Safety Report 18910497 (Version 2)
Quarter: 2021Q2

REPORT INFORMATION
  Report Type: Spontaneous
  Country: CH (occurrence: CH)
  Receive Date: 20210218
  Receipt Date: 20210407
  Transmission Date: 20210717
  Serious: Yes (Death, Other)
  Sender: FDA-Public Use
  Company Number: CH-TAKEDA-2021TUS009753

PATIENT
  Sex: Male

DRUGS (1)
  1. VEYVONDI [Suspect]
     Active Substance: VONICOG ALFA
     Indication: PROPHYLAXIS
     Dosage: UNK
     Route: 065

REACTIONS (2)
  - Death [Fatal]
  - Disease complication [Unknown]
